FAERS Safety Report 7775564-0 (Version None)
Quarter: 2011Q3

REPORT INFORMATION
  Report Type: 
  Country: None (occurrence: None)
  Receive Date: 20110923
  Receipt Date: 20110922
  Transmission Date: 20111222
  Serious: Yes (Hospitalization)
  Sender: FDA-Public Use
  Company Number: AT-ABBOTT-11P-009-0714733-00

PATIENT
  Sex: Female
  Weight: 67 kg

DRUGS (4)
  1. ZEMPLAR [Suspect]
     Indication: HYPERPARATHYROIDISM
     Dates: start: 20100813
  2. OLEOVIT [Concomitant]
     Indication: HYPERPARATHYROIDISM
  3. RENVELA [Concomitant]
     Indication: HYPERPARATHYROIDISM
     Dosage: WEEKLY DOSE 28000 MG
  4. CINACALCET HYDROCHLORIDE [Concomitant]
     Indication: HYPERPARATHYROIDISM

REACTIONS (1)
  - INFECTIOUS PLEURAL EFFUSION [None]
